FAERS Safety Report 5265204-7 (Version None)
Quarter: 2007Q1

REPORT INFORMATION
  Report Type: 
  Country: None (occurrence: None)
  Receive Date: 20061213
  Receipt Date: 20040512
  Transmission Date: 20070707
  Serious: No
  Sender: FDA-Public Use
  Company Number: 2004UW05506

PATIENT
  Age: 50 Year
  Sex: Female
  Weight: 58.0604 kg

DRUGS (5)
  1. NOLVADEX [Suspect]
     Indication: BREAST CANCER
     Dosage: 20 MG QD PO
     Route: 048
     Dates: start: 20030620
  2. VITAMIN CAP [Concomitant]
  3. ALLEGRA [Concomitant]
  4. CALTRATE [Concomitant]
  5. VITAMIN E [Concomitant]

REACTIONS (1)
  - CATARACT [None]
